FAERS Safety Report 17057988 (Version 1)
Quarter: 2019Q4

REPORT INFORMATION
  Report Type: Spontaneous
  Country: JP (occurrence: JP)
  Receive Date: 20191121
  Receipt Date: 20191121
  Transmission Date: 20200122
  Serious: Yes (Other)
  Sender: FDA-Public Use
  Company Number: JP-PFIZER INC-2019496381

PATIENT
  Age: 65 Year
  Sex: Female

DRUGS (1)
  1. VIZIMPRO [Suspect]
     Active Substance: DACOMITINIB
     Dosage: 45 MG, UNK

REACTIONS (3)
  - Stomatitis [Unknown]
  - Vulval abscess [Recovering/Resolving]
  - Diarrhoea [Recovering/Resolving]
